FAERS Safety Report 8438396-6 (Version None)
Quarter: 2012Q2

REPORT INFORMATION
  Report Type: 
  Country: None (occurrence: None)
  Receive Date: 20120614
  Receipt Date: 20120604
  Transmission Date: 20120825
  Serious: Yes (Hospitalization)
  Sender: FDA-Public Use
  Company Number: US-ELI_LILLY_AND_COMPANY-US201203001585

PATIENT
  Sex: Female

DRUGS (15)
  1. FORTEO [Suspect]
     Dosage: 20 UG, QD
     Dates: start: 20120220
  2. MULTI-VITAMIN [Concomitant]
  3. WARFARIN SODIUM [Concomitant]
     Dosage: 7.5 MG, QD
  4. TOPIRAMATE [Concomitant]
     Dosage: 1 DF, QD
  5. CALCIUM [Concomitant]
     Dosage: 1400 MG, TID
  6. FORTEO [Suspect]
     Indication: OSTEOPOROSIS
     Dosage: 20 UG, QD
     Route: 065
     Dates: start: 20120220
  7. METOPROLOL [Concomitant]
     Dosage: 25 MG, QD
  8. VITAMIN D [Concomitant]
  9. PROTEINS NOS [Concomitant]
     Dosage: UNK, 4/W
  10. FORTEO [Suspect]
     Dosage: 20 UG, QD
     Dates: start: 20120220
  11. VITAMIN B-12 [Concomitant]
     Dosage: 2500 UG, QD
  12. HYDROCODONE [Concomitant]
     Indication: PAIN
     Dosage: 1 DF, PRN UP TO EVERY 4 HOUR
  13. CELEXA [Concomitant]
     Dosage: 20 MG, QD
  14. RELPAX [Concomitant]
     Indication: MIGRAINE
     Dosage: 40 MG, PRN
  15. IRON [Concomitant]
     Dosage: 325 MG, QD

REACTIONS (3)
  - ABDOMINAL WALL DISORDER [None]
  - PAIN [None]
  - ABDOMINAL STRANGULATED HERNIA [None]
